FAERS Safety Report 5638909-3 (Version None)
Quarter: 2008Q1

REPORT INFORMATION
  Report Type: 
  Country: None (occurrence: None)
  Receive Date: 20080226
  Receipt Date: 20080215
  Transmission Date: 20080703
  Serious: Yes (Other)
  Sender: FDA-Public Use
  Company Number: US-JNJFOC-20080203710

PATIENT
  Sex: Female

DRUGS (4)
  1. DURAGESIC-100 [Suspect]
     Indication: PAIN
     Route: 062
  2. TRAMADOL HCL [Suspect]
     Indication: PAIN
     Route: 065
  3. PEG-INTRON [Concomitant]
     Indication: HEPATITIS C
     Route: 058
  4. REBETOL [Concomitant]
     Indication: HEPATITIS C
     Route: 048

REACTIONS (6)
  - ABDOMINAL PAIN UPPER [None]
  - DEPRESSION [None]
  - FALL [None]
  - JOINT INJURY [None]
  - MUSCLE SPASMS [None]
  - VOMITING [None]
